FAERS Safety Report 6054743-7 (Version None)
Quarter: 2009Q1

REPORT INFORMATION
  Report Type: 
  Country: None (occurrence: None)
  Receive Date: 20090128
  Receipt Date: 20090116
  Transmission Date: 20090719
  Serious: Yes (Other)
  Sender: FDA-Public Use
  Company Number: JP-AMGEN-US330297

PATIENT
  Age: 69 Year
  Sex: Female

DRUGS (14)
  1. ENBREL [Suspect]
     Indication: RHEUMATOID ARTHRITIS
     Dosage: SOLUTION FOR INJECTION: DOSE AND FREQUENCY NOT SPECIFIED
     Route: 058
     Dates: end: 20090108
  2. FOLIAMIN [Concomitant]
  3. BONALON [Concomitant]
  4. ISONIAZID [Concomitant]
  5. PYDOXAL [Concomitant]
  6. TRIAZOLAM [Concomitant]
  7. MICARDIS [Concomitant]
  8. TAKEPRON [Concomitant]
  9. NORVASC [Concomitant]
  10. ACECOL [Concomitant]
  11. CARDENALIN [Concomitant]
  12. VASOLAN [Concomitant]
  13. RHEUMATREX [Concomitant]
  14. MOHRUS [Concomitant]

REACTIONS (1)
  - ATRIAL FIBRILLATION [None]
